FAERS Safety Report 8249493-2 (Version None)
Quarter: 2012Q2

REPORT INFORMATION
  Report Type: 
  Country: None (occurrence: None)
  Receive Date: 20120402
  Receipt Date: 20120323
  Transmission Date: 20120825
  Serious: Yes (Other)
  Sender: FDA-Public Use
  Company Number: IT-JNJFOC-20120305682

PATIENT
  Age: 60 Year
  Sex: Female

DRUGS (5)
  1. RISPERDAL [Suspect]
     Indication: SELF INJURIOUS BEHAVIOUR
     Dosage: 1MG/ML, HALF A VIAL
     Route: 048
     Dates: start: 20120310, end: 20120310
  2. RISPERDAL [Suspect]
     Indication: PRODUCT USED FOR UNKNOWN INDICATION
     Dosage: 1MG/ML, HALF A VIAL
     Route: 048
     Dates: start: 20120310, end: 20120310
  3. DIAZEPAM [Suspect]
     Indication: SELF INJURIOUS BEHAVIOUR
     Dosage: 0.5%
     Route: 048
     Dates: start: 20120310, end: 20120310
  4. RISPERDAL [Suspect]
     Route: 048
  5. RISPERDAL [Suspect]
     Route: 048

REACTIONS (2)
  - SELF INJURIOUS BEHAVIOUR [None]
  - SLUGGISHNESS [None]
